FAERS Safety Report 8615820-7 (Version None)
Quarter: 2012Q3

REPORT INFORMATION
  Report Type: 
  Country: None (occurrence: None)
  Receive Date: 20120823
  Receipt Date: 20120815
  Transmission Date: 20120928
  Serious: Yes (Other)
  Sender: FDA-Public Use
  Company Number: PHHY2012US070677

PATIENT
  Age: 24 Year
  Sex: Male

DRUGS (1)
  1. MEFLOQUINE HYDROCHLORIDE [Suspect]

REACTIONS (31)
  - DRUG HYPERSENSITIVITY [None]
  - PHOTOPHOBIA [None]
  - BALANCE DISORDER [None]
  - DELIRIUM [None]
  - RESTLESSNESS [None]
  - AMNESIA [None]
  - VESTIBULAR DISORDER [None]
  - HEADACHE [None]
  - ALANINE AMINOTRANSFERASE DECREASED [None]
  - SLEEP DISORDER [None]
  - IRRITABILITY [None]
  - ANGER [None]
  - FATIGUE [None]
  - FEELING ABNORMAL [None]
  - PALPITATIONS [None]
  - VERTIGO [None]
  - EMOTIONAL POVERTY [None]
  - TOXIC ENCEPHALOPATHY [None]
  - PERSONALITY DISORDER [None]
  - CONFUSIONAL STATE [None]
  - HALLUCINATION, AUDITORY [None]
  - ANXIETY [None]
  - TINNITUS [None]
  - PERSONALITY CHANGE [None]
  - SUICIDAL IDEATION [None]
  - FEELING HOT [None]
  - ILLUSION [None]
  - TOXICITY TO VARIOUS AGENTS [None]
  - PARANOIA [None]
  - SENSORY LOSS [None]
  - AGGRESSION [None]
